FAERS Safety Report 17709286 (Version 1)
Quarter: 2020Q2

REPORT INFORMATION
  Report Type: Spontaneous
  Country: RU (occurrence: RU)
  Receive Date: 20200426
  Receipt Date: 20200426
  Transmission Date: 20200714
  Serious: Yes (Death, Life-Threatening, Hospitalization, Other)
  Sender: FDA-Public Use
  Company Number: RU-BAXTER-2020BAX008709

PATIENT
  Age: 13 Year
  Sex: Female

DRUGS (9)
  1. VINCRISTINE [Suspect]
     Active Substance: VINCRISTINE
     Indication: EWING^S SARCOMA
     Route: 065
  2. AMIKACIN. [Suspect]
     Active Substance: AMIKACIN
     Indication: CANDIDA INFECTION
     Route: 065
  3. FLUCONAZOLE. [Suspect]
     Active Substance: FLUCONAZOLE
     Indication: CANDIDA INFECTION
     Route: 048
  4. MEROPENEM. [Suspect]
     Active Substance: MEROPENEM
     Indication: CANDIDA INFECTION
     Route: 065
  5. VANCOMYCIN [Suspect]
     Active Substance: VANCOMYCIN
     Indication: CANDIDA INFECTION
     Route: 065
  6. FLUCONAZOLE. [Suspect]
     Active Substance: FLUCONAZOLE
     Indication: PRODUCT USED FOR UNKNOWN INDICATION
     Route: 042
  7. ETOPOSIDE. [Suspect]
     Active Substance: ETOPOSIDE
     Indication: EWING^S SARCOMA
     Route: 065
  8. DOXIL [Suspect]
     Active Substance: DOXORUBICIN HYDROCHLORIDE
     Indication: EWING^S SARCOMA
     Dosage: REINITIATION
     Route: 065
  9. IFOSFAMIDE. [Suspect]
     Active Substance: IFOSFAMIDE
     Indication: EWING^S SARCOMA
     Route: 065

REACTIONS (10)
  - Vulvovaginitis [Not Recovered/Not Resolved]
  - Infection [Fatal]
  - Systemic candida [Fatal]
  - Cystitis [Unknown]
  - Dermatitis [Unknown]
  - Bone marrow failure [Unknown]
  - Febrile neutropenia [Unknown]
  - Candida infection [Fatal]
  - Multiple organ dysfunction syndrome [Fatal]
  - Enterococcal infection [Not Recovered/Not Resolved]
